FAERS Safety Report 9273871 (Version 1)
Quarter: 2013Q2

REPORT INFORMATION
  Report Type: Spontaneous
  Country: US (occurrence: US)
  Receive Date: 20130506
  Receipt Date: 20130506
  Transmission Date: 20140414
  Serious: No
  Sender: FDA-Public Use
  Company Number: US-AMGEN-USASP2013026498

PATIENT
  Age: 57 Year
  Sex: Female
  Weight: 104.31 kg

DRUGS (1)
  1. ENBREL [Suspect]
     Indication: PSORIASIS
     Dosage: 50 MG, QWK
     Dates: start: 2008

REACTIONS (3)
  - Rash erythematous [Not Recovered/Not Resolved]
  - Miliaria [Not Recovered/Not Resolved]
  - Flushing [Not Recovered/Not Resolved]
